FAERS Safety Report 15786872 (Version 1)
Quarter: 2019Q1

REPORT INFORMATION
  Report Type: Report from Study
  Country: US (occurrence: US)
  Receive Date: 20190103
  Receipt Date: 20190103
  Transmission Date: 20190417
  Serious: Yes (Other)
  Sender: FDA-Public Use
  Company Number: US-GILEAD-2019-0382961

PATIENT
  Age: 86 Year
  Sex: Male

DRUGS (1)
  1. RANOLAZINE. [Suspect]
     Active Substance: RANOLAZINE
     Indication: ANGINA PECTORIS
     Dosage: 500 MG, BID
     Route: 048
     Dates: start: 201601

REACTIONS (2)
  - Neoplasm malignant [Not Recovered/Not Resolved]
  - Lung disorder [Unknown]

NARRATIVE: CASE EVENT DATE: 201806
